FAERS Safety Report 6476663-6 (Version None)
Quarter: 2009Q4

REPORT INFORMATION
  Report Type: 
  Country: None (occurrence: None)
  Receive Date: 20091204
  Receipt Date: 20091204
  Transmission Date: 20100525
  Serious: No
  Sender: FDA-Public Use
  Company Number: None

PATIENT
  Age: 54 Year
  Sex: Female
  Weight: 56.246 kg

DRUGS (1)
  1. ACTONEL [Suspect]
     Dosage: 35MG WEEKLY PO
     Route: 048
     Dates: start: 20060428, end: 20061212

REACTIONS (12)
  - ARTHRALGIA [None]
  - ARTHROPATHY [None]
  - BURNING SENSATION [None]
  - INFLAMMATION [None]
  - LIGAMENT DISORDER [None]
  - MIDDLE INSOMNIA [None]
  - MUSCLE SPASMS [None]
  - MUSCULOSKELETAL PAIN [None]
  - MYALGIA [None]
  - ORTHOSIS USER [None]
  - TENDON DISORDER [None]
  - THROMBOSIS [None]
